FAERS Safety Report 7886577-2 (Version None)
Quarter: 2011Q4

REPORT INFORMATION
  Report Type: 
  Country: None (occurrence: None)
  Receive Date: 20111102
  Receipt Date: 20110707
  Transmission Date: 20120403
  Serious: No
  Sender: FDA-Public Use
  Company Number: US-AMGEN-USASP2011034481

PATIENT
  Age: 55 Year
  Sex: Female
  Weight: 300 kg

DRUGS (1)
  1. ENBREL [Suspect]
     Indication: ANKYLOSING SPONDYLITIS
     Dosage: 50 MG, QWK
     Dates: start: 20110308

REACTIONS (3)
  - SINUSITIS [None]
  - EAR INFECTION [None]
  - TOOTH DISORDER [None]
